FAERS Safety Report 5166692-7 (Version None)
Quarter: 2006Q4

REPORT INFORMATION
  Report Type: 
  Country: None (occurrence: None)
  Receive Date: 20061207
  Receipt Date: 20061016
  Transmission Date: 20070319
  Serious: Yes (Hospitalization, Other)
  Sender: FDA-Public Use
  Company Number: PHNU2006DE03448

PATIENT
  Age: 41 Year
  Sex: Female
  Weight: 73 kg

DRUGS (12)
  1. SANDIMMUNE [Suspect]
     Indication: RENAL TRANSPLANT
     Dosage: 150 MG/D
     Route: 048
     Dates: start: 20010523
  2. CEPHALOSPORINS AND RELATED SUBSTANCES [Suspect]
  3. ANTIMYCOTICS FOR SYSTEMIC USE, EXCL GRISEOFUL [Suspect]
  4. ANTIBIOTICS [Suspect]
  5. CLONT [Suspect]
  6. DIFLUCAN [Suspect]
  7. TYGACYL [Suspect]
  8. SANDIMMUNE [Suspect]
     Indication: RENAL TRANSPLANT
     Dosage: 175 MG/D
     Route: 048
     Dates: start: 20010201
  9. SANDIMMUNE [Suspect]
     Dates: start: 19960701
  10. CELLCEPT [Suspect]
     Indication: RENAL TRANSPLANT
     Dosage: 750 MG/D
     Route: 048
     Dates: start: 20010201
  11. DECORTIN-H [Suspect]
     Indication: RENAL TRANSPLANT
     Dosage: 10 MG/D
     Route: 048
     Dates: start: 20010201
  12. ANTIRHEUMATIC (INCL.ANTIPHLOGISTICS) [Concomitant]

REACTIONS (19)
  - ARTIFICIAL ANUS [None]
  - BLOOD CREATININE INCREASED [None]
  - BREAST CANCER FEMALE [None]
  - CYSTITIS [None]
  - DISEASE RECURRENCE [None]
  - FIBROMYALGIA [None]
  - FISTULA [None]
  - IMPAIRED HEALING [None]
  - INTESTINAL FISTULA [None]
  - INTESTINAL INFARCTION [None]
  - INTESTINAL PERFORATION [None]
  - KIDNEY TRANSPLANT REJECTION [None]
  - OOPHORECTOMY [None]
  - OVARIAN CANCER [None]
  - POLYNEUROPATHY [None]
  - PSEUDOMEMBRANOUS COLITIS [None]
  - PULMONARY EMBOLISM [None]
  - SURGERY [None]
  - SUTURE RUPTURE [None]
